FAERS Safety Report 15175575 (Version 1)
Quarter: 2018Q3

REPORT INFORMATION
  Report Type: Report from Study
  Country: US (occurrence: US)
  Receive Date: 20180720
  Receipt Date: 20180720
  Transmission Date: 20181010
  Serious: No
  Sender: FDA-Public Use
  Company Number: US-AMGEN-USASL2018065150

PATIENT
  Sex: Female

DRUGS (1)
  1. REPATHA [Suspect]
     Active Substance: EVOLOCUMAB
     Indication: BLOOD CHOLESTEROL INCREASED
     Dosage: 140 MG, Q2WK
     Route: 065

REACTIONS (11)
  - Pain in extremity [Unknown]
  - Hypertension [Unknown]
  - Headache [Unknown]
  - Burning sensation [Unknown]
  - Joint swelling [Unknown]
  - Swelling face [Unknown]
  - Influenza like illness [Unknown]
  - Blood glucose increased [Unknown]
  - Back pain [Unknown]
  - Arthralgia [Unknown]
  - Visual impairment [Unknown]
